FAERS Safety Report 4848130-4 (Version None)
Quarter: 2005Q4

REPORT INFORMATION
  Report Type: 
  Country: None (occurrence: None)
  Receive Date: 20051208
  Receipt Date: 20040312
  Transmission Date: 20060501
  Serious: Yes (Death)
  Sender: FDA-Public Use
  Company Number: 200411007FR

PATIENT
  Age: 81 Year
  Sex: Male
  Weight: 85 kg

DRUGS (8)
  1. LASILIX [Suspect]
     Route: 048
     Dates: start: 20030615
  2. LASILIX [Suspect]
     Route: 042
  3. TRIATEC 5 MG [Suspect]
     Route: 048
     Dates: start: 20030615, end: 20040201
  4. CIFLOX [Suspect]
     Route: 048
     Dates: start: 20040201, end: 20040220
  5. CELEBREX [Suspect]
     Route: 048
     Dates: start: 20030615, end: 20040128
  6. AUGMENTIN [Suspect]
     Route: 048
  7. NITROGLYCERIN [Suspect]
  8. NOZINAN [Concomitant]

REACTIONS (14)
  - ACUTE RESPIRATORY FAILURE [None]
  - ANURIA [None]
  - CARDIAC FAILURE [None]
  - DEHYDRATION [None]
  - DIALYSIS [None]
  - EOSINOPHILIA [None]
  - HYPERKALAEMIA [None]
  - HYPONATRAEMIA [None]
  - HYPOTENSION [None]
  - LUNG DISORDER [None]
  - RENAL FAILURE ACUTE [None]
  - SEPSIS [None]
  - SOMNOLENCE [None]
  - WEIGHT DECREASED [None]
